FAERS Safety Report 25622111 (Version 1)
Quarter: 2025Q3

REPORT INFORMATION
  Report Type: Other
  Country: EU (occurrence: EU)
  Receive Date: 20250730
  Receipt Date: 20250730
  Transmission Date: 20251021
  Serious: Yes (Congenital Anomaly)
  Sender: ZYDUS PHARM
  Company Number: None

PATIENT

DRUGS (2)
  1. VENLAFAXINE [Suspect]
     Active Substance: VENLAFAXINE HYDROCHLORIDE
     Indication: Depression
     Route: 065
     Dates: end: 20250621
  2. HYDROXYZINE HYDROCHLORIDE [Suspect]
     Active Substance: HYDROXYZINE HYDROCHLORIDE
     Indication: Depression
     Route: 065
     Dates: end: 20250621

REACTIONS (4)
  - Foetal growth restriction [Unknown]
  - Tremor [Unknown]
  - Agitation [Unknown]
  - Foetal exposure during pregnancy [Unknown]

NARRATIVE: CASE EVENT DATE: 20250621
